FAERS Safety Report 22795815 (Version 4)
Quarter: 2024Q4

REPORT INFORMATION
  Report Type: Spontaneous
  Country: JP (occurrence: JP)
  Receive Date: 20230807
  Receipt Date: 20241227
  Transmission Date: 20250115
  Serious: Yes (Death, Life-Threatening, Hospitalization, Other)
  Sender: GLAXOSMITHKLINE
  Company Number: JP-GSKJP-JP2023JPN104901AA

PATIENT

DRUGS (30)
  1. DAPRODUSTAT [Suspect]
     Active Substance: DAPRODUSTAT
     Indication: Nephrogenic anaemia
     Dosage: UNK
  2. DAPRODUSTAT [Suspect]
     Active Substance: DAPRODUSTAT
     Dosage: 4 MG, 1D, 2 MG X 2
     Route: 048
     Dates: start: 20230708
  3. PREDONINE [Concomitant]
     Active Substance: PREDNISOLONE
     Indication: Atheroembolism
     Dosage: 7 MG, 1D
     Route: 048
     Dates: start: 20230629
  4. VONOPRAZAN FUMARATE [Concomitant]
     Active Substance: VONOPRAZAN FUMARATE
     Indication: Gastrooesophageal reflux disease
     Dosage: 10 MG, 1D
     Route: 048
     Dates: start: 20230629
  5. URAPIDIL [Concomitant]
     Active Substance: URAPIDIL
     Indication: Neurogenic bladder
     Dosage: 15 MG, BID
     Route: 048
     Dates: start: 20230703
  6. BETHANECHOL CHLORIDE [Concomitant]
     Active Substance: BETHANECHOL CHLORIDE
     Indication: Neurogenic bladder
     Dosage: 10 MG, TID
     Route: 048
     Dates: start: 20230703
  7. LIMAPROST [Concomitant]
     Active Substance: LIMAPROST
     Indication: Thromboangiitis obliterans
     Dosage: UNK
  8. LIMAPROST [Concomitant]
     Active Substance: LIMAPROST
     Dosage: 10 ?G, TID
     Route: 048
     Dates: start: 20230707, end: 20230712
  9. LIMAPROST [Concomitant]
     Active Substance: LIMAPROST
     Dosage: 5 ?G, TID
     Route: 048
     Dates: start: 20230713
  10. ICOSAPENT ETHYL [Concomitant]
     Active Substance: ICOSAPENT ETHYL
     Indication: Peripheral arterial occlusive disease
     Dosage: UNK
  11. ICOSAPENT ETHYL [Concomitant]
     Active Substance: ICOSAPENT ETHYL
     Dosage: 900 MG, BID
     Route: 048
     Dates: start: 20230707
  12. CARVEDILOL [Concomitant]
     Active Substance: CARVEDILOL
     Indication: Cardiac failure congestive
     Dosage: UNK
  13. CARVEDILOL [Concomitant]
     Active Substance: CARVEDILOL
     Indication: Stress cardiomyopathy
     Dosage: 25 MG, BID
     Route: 048
     Dates: start: 20230707
  14. CALCIUM CHLORIDE\MALTOSE\POTASSIUM CHLORIDE\SODIUM CHLORIDE\SODIUM LAC [Concomitant]
     Active Substance: CALCIUM CHLORIDE\MALTOSE\POTASSIUM CHLORIDE\SODIUM CHLORIDE\SODIUM LACTATE
     Dosage: 500 ML, 1D
  15. SODIUM CHLORIDE [Concomitant]
     Active Substance: SODIUM CHLORIDE
     Dosage: 10 ML, 1D
  16. SODIUM CHLORIDE [Concomitant]
     Active Substance: SODIUM CHLORIDE
     Dosage: 10 ML, BID
  17. SODIUM CHLORIDE [Concomitant]
     Active Substance: SODIUM CHLORIDE
     Dosage: 20 ML, 1D
  18. SODIUM CHLORIDE [Concomitant]
     Active Substance: SODIUM CHLORIDE
     Dosage: 100 ML, BID
  19. FUROSEMIDE [Concomitant]
     Active Substance: FUROSEMIDE
     Dosage: 20 MG, 1D
     Dates: start: 20230708
  20. FUROSEMIDE [Concomitant]
     Active Substance: FUROSEMIDE
     Dosage: 40 MG, 1D
  21. SOLDEM 6 [Concomitant]
     Dosage: 200 ML, 1D
  22. SOLDEM 6 [Concomitant]
     Dosage: 500 ML, 1D
  23. CYANOCOBALAMIN\PYRIDOXINE HYDROCHLORIDE\THIAMINE [Concomitant]
     Active Substance: CYANOCOBALAMIN\PYRIDOXINE HYDROCHLORIDE\THIAMINE
     Dosage: 1 DF, 1D
  24. VITAMIN C [Concomitant]
     Active Substance: ASCORBIC ACID
     Dosage: 500 MG, 1D
  25. DEXTROSE [Concomitant]
     Active Substance: DEXTROSE MONOHYDRATE
     Dosage: 2 DF, 1D, 50% 20ML
  26. DEXTROSE [Concomitant]
     Active Substance: DEXTROSE MONOHYDRATE
     Dosage: 1 DF, TID, 5% 100ML, AT 6:00, 14:00 AND 22:00
  27. DEXTROSE [Concomitant]
     Active Substance: DEXTROSE MONOHYDRATE
     Dosage: 2 DF, 1D
  28. PREDONINE [Concomitant]
     Active Substance: PREDNISOLONE
     Dosage: 10 MG, 1D, AT 10:00
  29. SOLDEM 3A [Concomitant]
     Active Substance: CARBOHYDRATES\POTASSIUM CHLORIDE\SODIUM CHLORIDE\SODIUM LACTATE
     Dosage: 500 ML, 1D
  30. PHYSIOSOL 3 [Concomitant]
     Dosage: 500 ML, BID

REACTIONS (7)
  - Altered state of consciousness [Unknown]
  - Pyrexia [Unknown]
  - Hypoxia [Unknown]
  - Depressed level of consciousness [Unknown]
  - Cardiac failure congestive [Fatal]
  - Stress cardiomyopathy [Fatal]
  - Pneumonia aspiration [Recovered/Resolved]

NARRATIVE: CASE EVENT DATE: 20230623
